FAERS Safety Report 5060108-7 (Version None)
Quarter: 2006Q3

REPORT INFORMATION
  Report Type: 
  Country: None (occurrence: None)
  Receive Date: 20060724
  Receipt Date: 19990127
  Transmission Date: 20061208
  Serious: Yes (Other)
  Sender: FDA-Public Use
  Company Number: DE-BRISTOL-MYERS SQUIBB COMPANY-13445382

PATIENT
  Sex: Male

DRUGS (3)
  1. VEPESID [Suspect]
     Indication: GASTRIC CANCER
     Dosage: FOLINIC ACID/FLUOROURACIL/ETOPOSIDE MAR-1995 TO AT LEAST 29-DEC-1999 W/INTERMITTENT IMPLICATIONS.
     Dates: start: 19981001, end: 19991229
  2. FOLINIC ACID [Suspect]
     Dosage: FOLINIC ACID/FLUOROURACIL/ETOPOSIDE MAR-1995 TO AT LEAST 29-DEC-1999 W/INTERMITTENT IMPLICATIONS.
     Dates: start: 19950301
  3. FLUOROURACIL [Suspect]
     Indication: GASTRIC CANCER
     Dosage: FOLINIC ACID/FLUOROURACIL/ETOPOSIDE MAR-1995 TO AT LEAST 29-DEC-1999 W/INTERMITTENT IMPLICATIONS.
     Dates: start: 19950301

REACTIONS (7)
  - AXILLARY VEIN THROMBOSIS [None]
  - DIZZINESS [None]
  - EMPHYSEMA [None]
  - GAMMOPATHY [None]
  - HIV ANTIBODY [None]
  - LUNG INFILTRATION [None]
  - LUNG NEOPLASM [None]
